FAERS Safety Report 20612388 (Version 2)
Quarter: 2022Q1

REPORT INFORMATION
  Report Type: Spontaneous
  Country: US (occurrence: US)
  Receive Date: 20220318
  Receipt Date: 20220323
  Transmission Date: 20220423
  Serious: Yes (Other)
  Sender: FDA-Public Use
  Company Number: US-STRIDES ARCOLAB LIMITED-2022SP002789

PATIENT

DRUGS (2)
  1. RANITIDINE [Suspect]
     Active Substance: RANITIDINE
     Indication: Product used for unknown indication
     Dosage: UNK, ZANTAC
     Route: 065
     Dates: start: 2014, end: 2016
  2. RANITIDINE [Suspect]
     Active Substance: RANITIDINE
     Dosage: UNK, RANITDINE
     Route: 065
     Dates: start: 2014, end: 2016

REACTIONS (1)
  - Bladder cancer [Unknown]

NARRATIVE: CASE EVENT DATE: 20170101
